FAERS Safety Report 6871109-8 (Version None)
Quarter: 2010Q3

REPORT INFORMATION
  Report Type: 
  Country: None (occurrence: None)
  Receive Date: 20100723
  Receipt Date: 20100715
  Transmission Date: 20110219
  Serious: Yes (Hospitalization, Other)
  Sender: FDA-Public Use
  Company Number: US-ELI_LILLY_AND_COMPANY-US201007004609

PATIENT
  Age: 57 Year
  Sex: Male
  Weight: 99.773 kg

DRUGS (1)
  1. EFFIENT [Suspect]
     Indication: HEART RATE IRREGULAR
     Dosage: 10 MG, DAILY (1/D)
     Dates: start: 20100501, end: 20100608

REACTIONS (4)
  - ASTHENIA [None]
  - FAECES DISCOLOURED [None]
  - GASTROINTESTINAL HAEMORRHAGE [None]
  - OFF LABEL USE [None]
